FAERS Safety Report 21704546 (Version 1)
Quarter: 2022Q4

REPORT INFORMATION
  Report Type: Spontaneous
  Country: US (occurrence: US)
  Receive Date: 20221209
  Receipt Date: 20221209
  Transmission Date: 20230113
  Serious: No
  Sender: FDA-Public Use
  Company Number: US-CIPLA LTD.-2022US01068

PATIENT

DRUGS (2)
  1. BUDESONIDE [Suspect]
     Active Substance: BUDESONIDE
     Indication: Wheezing
     Dosage: 1 VIAL VIA NEBULIZER, TWICE A DAY (1 DOSAGE FORM, BID)
     Dates: start: 202108
  2. BUDESONIDE [Suspect]
     Active Substance: BUDESONIDE
     Indication: Chest discomfort
     Dosage: 1 VIAL VIA NEBULIZER, TWICE A DAY (1 DOSAGE FORM, BID)

REACTIONS (3)
  - Off label use [Unknown]
  - Product use issue [Unknown]
  - Product prescribing issue [Unknown]

NARRATIVE: CASE EVENT DATE: 20210805
